FAERS Safety Report 7361124-2 (Version None)
Quarter: 2011Q1

REPORT INFORMATION
  Report Type: 
  Country: None (occurrence: None)
  Receive Date: 20110318
  Receipt Date: 20110315
  Transmission Date: 20110831
  Serious: Yes (Other)
  Sender: FDA-Public Use
  Company Number: BR-ROCHE-765678

PATIENT
  Sex: Female
  Weight: 53 kg

DRUGS (6)
  1. INDOCIN [Concomitant]
     Indication: PAIN
     Dosage: FREQUENCY: 1-3 TABLETS/DAY
  2. TOCILIZUMAB [Suspect]
     Indication: RHEUMATOID ARTHRITIS
     Dosage: FORM: INFUSION
     Route: 042
     Dates: start: 20100601
  3. AMLODIPINE BESYLATE AND OLMESARTAN MEDOXOMIL [Suspect]
     Indication: HYPERTENSION
     Dosage: DRUG REPORTED AS: ANLO
  4. METHOTREXATE [Concomitant]
  5. NAPRIX [Concomitant]
     Dosage: FREQUENCY: 2 TABLET PER DAY
  6. TOCILIZUMAB [Suspect]
     Dosage: FORM: INFUSION
     Route: 042

REACTIONS (1)
  - ANAEMIA [None]
